FAERS Safety Report 13925894 (Version 1)
Quarter: 2017Q3

REPORT INFORMATION
  Report Type: Spontaneous
  Country: KR (occurrence: KR)
  Receive Date: 20170831
  Receipt Date: 20170831
  Transmission Date: 20171127
  Serious: Yes (Other)
  Sender: FDA-Public Use
  Company Number: KR-FRESENIUS KABI-FK201707270

PATIENT
  Age: 72 Year
  Sex: Male

DRUGS (3)
  1. ETHAMBUTOL [Suspect]
     Active Substance: ETHAMBUTOL HYDROCHLORIDE
     Indication: ANTI-INFECTIVE THERAPY
     Route: 065
  2. ISONIAZID (MANUFACTURER UNKNOWN) [Suspect]
     Active Substance: ISONIAZID
     Indication: ANTI-INFECTIVE THERAPY
     Route: 065
  3. RIFAMPIN (MANUFACTURER UNKNOWN) [Suspect]
     Active Substance: RIFAMPIN
     Indication: ANTI-INFECTIVE THERAPY
     Route: 065

REACTIONS (3)
  - Hypersensitivity vasculitis [Recovered/Resolved]
  - Cutaneous vasculitis [Recovered/Resolved]
  - Vasculitis gastrointestinal [Recovered/Resolved]
